FAERS Safety Report 4459508-5 (Version None)
Quarter: 2004Q3

REPORT INFORMATION
  Report Type: 
  Country: None (occurrence: None)
  Receive Date: 20040910
  Receipt Date: 20040708
  Transmission Date: 20050211
  Serious: Yes (Hospitalization)
  Sender: FDA-Public Use
  Company Number: 2004220260US

PATIENT
  Age: 85 Year
  Sex: Female

DRUGS (7)
  1. BEXTRA [Suspect]
     Indication: OSTEOARTHRITIS
     Dosage: 20 MG, QD, ORAL
     Route: 048
     Dates: start: 20030101, end: 20040401
  2. COUMADIN [Concomitant]
  3. PREVACID [Concomitant]
  4. EVIZAK [Concomitant]
  5. ZINC [Concomitant]
  6. HYZAAR [Concomitant]
  7. ANTIBIOTICS [Concomitant]

REACTIONS (4)
  - ANAEMIA [None]
  - FATIGUE [None]
  - GASTRITIS EROSIVE [None]
  - GASTROINTESTINAL HAEMORRHAGE [None]
